APPROVED DRUG PRODUCT: EOVIST
Active Ingredient: GADOXETATE DISODIUM
Strength: 2.72145GM/15ML (181.43MG/ML)
Dosage Form/Route: SOLUTION;INTRAVENOUS
Application: N022090 | Product #002
Applicant: BAYER HEALTHCARE PHARMACEUTICALS INC
Approved: Feb 4, 2013 | RLD: Yes | RS: No | Type: RX